FAERS Safety Report 4509169-1 (Version None)
Quarter: 2004Q4

REPORT INFORMATION
  Report Type: 
  Country: None (occurrence: None)
  Receive Date: 20041025
  Receipt Date: 20040511
  Transmission Date: 20050328
  Serious: Yes (Other)
  Sender: FDA-Public Use
  Company Number: NSADSS2002027867

PATIENT
  Age: 51 Year
  Sex: Male
  Weight: 98.8842 kg

DRUGS (7)
  1. REMICADE [Suspect]
     Indication: CROHN'S DISEASE
     Dosage: 5 MG/KG, INTRAVENOUS DRIP
     Route: 041
     Dates: start: 20020815
  2. IMURAN [Concomitant]
  3. PREDNISONE [Concomitant]
  4. BENADRYL [Concomitant]
  5. TYLENOL [Concomitant]
  6. PENTASA [Concomitant]
  7. CIPROFLOXACIN [Concomitant]

REACTIONS (1)
  - HYPERSENSITIVITY [None]
